FAERS Safety Report 18928601 (Version 1)
Quarter: 2021Q1

REPORT INFORMATION
  Report Type: Spontaneous
  Country: US (occurrence: US)
  Receive Date: 20210223
  Receipt Date: 20210223
  Transmission Date: 20210420
  Serious: Yes (Death, Other)
  Sender: FDA-Public Use
  Company Number: US-JNJFOC-20191229022

PATIENT
  Age: 20 Year
  Sex: Female
  Weight: 63.56 kg

DRUGS (1)
  1. IMODIUM [Suspect]
     Active Substance: LOPERAMIDE HYDROCHLORIDE
     Indication: PAIN MANAGEMENT
     Dosage: SHES TAKING 100 PILLS IN A DAY SHES TAKING 100 PILLS IN A DAY
     Route: 065
     Dates: start: 20180101, end: 20180419

REACTIONS (5)
  - Off label use [Unknown]
  - Intentional overdose [Fatal]
  - Drug abuse [Unknown]
  - Product used for unknown indication [Unknown]
  - Toxicity to various agents [Fatal]

NARRATIVE: CASE EVENT DATE: 20180101
